FAERS Safety Report 14697224 (Version 1)
Quarter: 2018Q1

REPORT INFORMATION
  Report Type: Spontaneous
  Country: US (occurrence: US)
  Receive Date: 20180330
  Receipt Date: 20180330
  Transmission Date: 20180509
  Serious: No
  Sender: FDA-Public Use
  Company Number: US-SA-2017SA124634

PATIENT
  Age: 75 Year
  Sex: Male

DRUGS (1)
  1. ALLEGRA [Suspect]
     Active Substance: FEXOFENADINE HYDROCHLORIDE
     Indication: HYPERSENSITIVITY
     Dosage: FORM - GELCAPS??ABOUT TWICE A WEEK HE TAKES TWO TABLETS (1 IN THE MORNING AND 1 AT NIGHT).
     Route: 048

REACTIONS (1)
  - Drug ineffective [Unknown]
